FAERS Safety Report 23036457 (Version 15)
Quarter: 2024Q4

REPORT INFORMATION
  Report Type: Spontaneous
  Country: CA (occurrence: CA)
  Receive Date: 20231006
  Receipt Date: 20241224
  Transmission Date: 20250115
  Serious: Yes (Other)
  Sender: CELLTRION
  Company Number: CA-CELLTRION INC.-2023CA019073

PATIENT

DRUGS (13)
  1. INFLECTRA [Suspect]
     Active Substance: INFLIXIMAB-DYYB
     Indication: Crohn^s disease
     Dosage: 500 MG, WEEKS 0, 2, 6 AND EVERY 8 WEEKS
     Route: 042
     Dates: start: 20221028
  2. INFLECTRA [Suspect]
     Active Substance: INFLIXIMAB-DYYB
     Dosage: 500 MG, WEEKS 0, 2, 6 AND EVERY 8 WEEKS
     Route: 042
     Dates: start: 20230608
  3. INFLECTRA [Suspect]
     Active Substance: INFLIXIMAB-DYYB
     Dosage: 500 MG, WEEKS 0, 2, 6 AND EVERY 8 WEEKS
     Route: 042
     Dates: start: 20230801
  4. INFLECTRA [Suspect]
     Active Substance: INFLIXIMAB-DYYB
     Dosage: 500 MG, WEEKS 0, 2, 6 AND EVERY 8 WEEKS
     Route: 042
     Dates: start: 20231124
  5. INFLECTRA [Suspect]
     Active Substance: INFLIXIMAB-DYYB
     Dosage: 500 MG, WEEKS 0, 2, 6 AND EVERY 8 WEEKS
     Route: 042
     Dates: start: 20240117
  6. INFLECTRA [Suspect]
     Active Substance: INFLIXIMAB-DYYB
     Dosage: 500 MG, EVERY 8 WEEKS (WEEKS 0, 2, 6 AND EVERY 8 WEEKS)
     Route: 042
     Dates: start: 20240313
  7. INFLECTRA [Suspect]
     Active Substance: INFLIXIMAB-DYYB
     Dosage: 1000 MG, EVERY 4 WEEKS
     Route: 042
     Dates: start: 20240412
  8. INFLECTRA [Suspect]
     Active Substance: INFLIXIMAB-DYYB
     Dosage: 1000 MG, EVERY 4 WEEKS
     Route: 042
     Dates: start: 20240510
  9. INFLECTRA [Suspect]
     Active Substance: INFLIXIMAB-DYYB
     Dosage: 1000 MG, AFTER 4 WEEKS AND 3 DAYS (PRESCRIBED EVERY 4 WEEKS)
     Route: 042
     Dates: start: 20240610
  10. INFLECTRA [Suspect]
     Active Substance: INFLIXIMAB-DYYB
     Dosage: 1000 MG, AFTER 4 WEEKS AND 2 DAYS (PRESCRIBED EVERY 4 WEEKS)
     Route: 042
     Dates: start: 20240710
  11. INFLECTRA [Suspect]
     Active Substance: INFLIXIMAB-DYYB
     Dosage: 1000 MG, EVERY 4 WEEK
     Route: 042
     Dates: start: 20240806
  12. INFLECTRA [Suspect]
     Active Substance: INFLIXIMAB-DYYB
     Dosage: 1000 MG, EVERY 4 WEEK
     Route: 042
     Dates: start: 20240906
  13. INFLECTRA [Suspect]
     Active Substance: INFLIXIMAB-DYYB
     Dosage: 1000 MG, EVERY 4 WEEK
     Route: 042
     Dates: start: 20241009

REACTIONS (8)
  - Haematochezia [Unknown]
  - Condition aggravated [Not Recovered/Not Resolved]
  - Drug level decreased [Unknown]
  - Mucous stools [Unknown]
  - Aphthous ulcer [Recovered/Resolved]
  - Defaecation urgency [Not Recovered/Not Resolved]
  - Accident [Unknown]
  - Inappropriate schedule of product administration [Unknown]

NARRATIVE: CASE EVENT DATE: 20230101
